FAERS Safety Report 8644132 (Version 4)
Quarter: 2012Q4

REPORT INFORMATION
  Report Type: 
  Country: US (occurrence: US)
  Receive Date: 20120629
  Receipt Date: 20121104
  Transmission Date: 20130627
  Serious: Yes (Death)
  Sender: FDA-Public Use
  Company Number: US-CELGENEUS-163-21880-12063353

PATIENT
  Age: 77 Year
  Sex: Male
  Weight: 81.72 kg

DRUGS (13)
  1. REVLIMID [Suspect]
     Indication: CML
     Dosage: 25 Milligram
     Route: 048
     Dates: start: 20101118
  2. REVLIMID [Suspect]
     Dosage: 10 Milligram
     Route: 048
     Dates: end: 20110513
  3. ASPIRIN [Concomitant]
     Indication: THROMBOSIS PROPHYLAXIS
     Dosage: 325 Milligram
     Route: 048
     Dates: start: 20101118, end: 20110829
  4. ASPIRIN [Concomitant]
     Indication: ANTICOAGULANT THERAPY
  5. CIPRO [Concomitant]
     Indication: DRUG USE FOR UNKNOWN INDICATION
     Dosage: 1000 Milligram
     Route: 048
  6. FILGRASTIM [Concomitant]
     Indication: DRUG USE FOR UNKNOWN INDICATION
     Dosage: 480 Microgram
     Route: 058
  7. METHADONE HCL [Concomitant]
     Indication: DRUG USE FOR UNKNOWN INDICATION
     Dosage: 1.5
     Route: 048
  8. MULTIVITAMINS [Concomitant]
     Indication: DRUG USE FOR UNKNOWN INDICATION
     Dosage: 1 Tablet
     Route: 048
  9. PERCOCET [Concomitant]
     Indication: PAIN
     Dosage: 1-2 Tabs
     Route: 048
  10. VITAMIN C [Concomitant]
     Indication: DRUG USE FOR UNKNOWN INDICATION
     Dosage: 500 Milligram
     Route: 048
  11. VITAMIN D [Concomitant]
     Indication: DRUG USE FOR UNKNOWN INDICATION
     Route: 048
  12. ZOLPIDEM TARTRATE [Concomitant]
     Indication: SLEEP DISORDER
     Dosage: 10 Milligram
     Route: 048
  13. CITALOPRAM [Concomitant]
     Indication: DRUG USE FOR UNKNOWN INDICATION
     Dosage: 20 Milligram
     Route: 048

REACTIONS (1)
  - Acute myeloid leukaemia [Fatal]
